FAERS Safety Report 19211105 (Version 2)
Quarter: 2021Q2

REPORT INFORMATION
  Report Type: Spontaneous
  Country: US (occurrence: US)
  Receive Date: 20210504
  Receipt Date: 20210511
  Transmission Date: 20210717
  Serious: Yes (Other)
  Sender: FDA-Public Use
  Company Number: US-PFIZER INC-2021450303

PATIENT
  Age: 54 Year
  Sex: Male
  Weight: 54.43 kg

DRUGS (2)
  1. LIPITOR [Suspect]
     Active Substance: ATORVASTATIN CALCIUM
     Indication: BLOOD CHOLESTEROL
     Dosage: 40 MG, 1X/DAY
     Dates: end: 20210401
  2. TOZINAMERAN. [Suspect]
     Active Substance: TOZINAMERAN
     Indication: COVID-19 IMMUNISATION
     Dosage: 1ST DOSE, SINGLE
     Dates: start: 20210324, end: 20210324

REACTIONS (10)
  - Dizziness [Recovered/Resolved]
  - Sleep disorder [Recovered/Resolved]
  - Prostate infection [Recovered/Resolved]
  - Hyperhidrosis [Recovered/Resolved]
  - White blood cells urine [Unknown]
  - Chromaturia [Recovered/Resolved]
  - Abdominal discomfort [Recovered/Resolved]
  - Pain in extremity [Recovered/Resolved]
  - Anxiety [Recovered/Resolved]
  - Blood urine present [Recovered/Resolved]

NARRATIVE: CASE EVENT DATE: 202103
